FAERS Safety Report 8571603-8 (Version None)
Quarter: 2012Q3

REPORT INFORMATION
  Report Type: 
  Country: None (occurrence: None)
  Receive Date: 20120806
  Receipt Date: 20120731
  Transmission Date: 20120928
  Serious: Yes (Other)
  Sender: FDA-Public Use
  Company Number: US-JNJFOC-20120300994

PATIENT
  Sex: Male
  Weight: 83.01 kg

DRUGS (10)
  1. PROPULSID [Suspect]
     Indication: GASTROINTESTINAL MOTILITY DISORDER
     Route: 048
     Dates: start: 20070209, end: 20120224
  2. KLONOPIN [Concomitant]
     Indication: INSOMNIA
     Route: 065
  3. ZOFRAN [Concomitant]
     Indication: NAUSEA
     Route: 065
     Dates: start: 20070415
  4. SINGULAIR [Concomitant]
     Indication: SEASONAL ALLERGY
     Route: 065
  5. PEPCID [Concomitant]
     Indication: DYSPEPSIA
     Route: 065
     Dates: start: 20091226
  6. MAGNESIUM HYDROXIDE TAB [Concomitant]
     Indication: DYSPEPSIA
     Route: 065
     Dates: start: 20091226
  7. PRIMIDONE [Suspect]
     Indication: ESSENTIAL TREMOR
     Route: 048
     Dates: start: 20111019, end: 20120215
  8. CIALIS [Concomitant]
     Indication: ERECTILE DYSFUNCTION
     Route: 065
  9. NEXIUM [Concomitant]
     Indication: GASTROOESOPHAGEAL REFLUX DISEASE
     Route: 065
     Dates: start: 20120123
  10. PROPULSID [Suspect]
     Indication: GASTROOESOPHAGEAL REFLUX DISEASE
     Route: 048
     Dates: start: 20070209, end: 20120224

REACTIONS (1)
  - ELECTROCARDIOGRAM QT PROLONGED [None]
